FAERS Safety Report 23029625 (Version 4)
Quarter: 2024Q3

REPORT INFORMATION
  Report Type: Spontaneous
  Country: IT (occurrence: IT)
  Receive Date: 20231004
  Receipt Date: 20240719
  Transmission Date: 20241017
  Serious: Yes (Hospitalization, Disabling, Other)
  Sender: GILEAD
  Company Number: None

PATIENT
  Age: 64 Year
  Sex: Female
  Weight: 51 kg

DRUGS (2)
  1. TECARTUS [Suspect]
     Active Substance: BREXUCABTAGENE AUTOLEUCEL
     Indication: Mantle cell lymphoma refractory
     Dosage: 0. 4-2 ? 10 E 8 CELLS/K
     Route: 042
     Dates: start: 20230619, end: 20230619
  2. BENDAMUSTINE;CYTARABINE;RITUXIMAB [Concomitant]
     Indication: Mantle cell lymphoma

REACTIONS (3)
  - Acute macular neuroretinopathy [Recovered/Resolved with Sequelae]
  - Cytokine release syndrome [Recovering/Resolving]
  - Immune effector cell-associated neurotoxicity syndrome [Unknown]

NARRATIVE: CASE EVENT DATE: 20230620
